FAERS Safety Report 9636577 (Version 2)
Quarter: 2013Q4

REPORT INFORMATION
  Report Type: Spontaneous
  Country: US (occurrence: US)
  Receive Date: 20131021
  Receipt Date: 20131118
  Transmission Date: 20140711
  Serious: Yes (Hospitalization)
  Sender: FDA-Public Use
  Company Number: US-GILEAD-2013-0085796

PATIENT
  Sex: Female
  Weight: 109 kg

DRUGS (16)
  1. LETAIRIS [Suspect]
     Indication: PULMONARY ARTERIAL HYPERTENSION
     Dosage: 10 MG, QD
     Route: 048
     Dates: start: 20111104
  2. LETAIRIS [Suspect]
     Indication: PULMONARY ARTERIAL HYPERTENSION
  3. TYVASO [Suspect]
     Indication: PULMONARY HYPERTENSION
     Dates: start: 20130408
  4. ADCIRCA [Concomitant]
     Indication: PULMONARY HYPERTENSION
     Dates: start: 20111104
  5. ADCIRCA [Concomitant]
     Indication: PULMONARY ARTERIAL HYPERTENSION
  6. OXYGEN [Concomitant]
     Indication: CHRONIC RESPIRATORY FAILURE
  7. VELETRI [Concomitant]
     Indication: PULMONARY HYPERTENSION
  8. SYNTHROID [Concomitant]
     Indication: HYPOTHYROIDISM
  9. XANAX [Concomitant]
     Indication: ANXIETY
  10. COUMADIN                           /00014802/ [Concomitant]
     Indication: PULMONARY HYPERTENSION
  11. DIGOXIN [Concomitant]
  12. PROPAFENONE [Concomitant]
  13. TRAMADOL [Concomitant]
     Indication: HEADACHE
  14. PRILOSEC                           /00661201/ [Concomitant]
  15. ZOFRAN                             /00955302/ [Concomitant]
     Indication: NAUSEA
  16. TYLENOL [Concomitant]

REACTIONS (1)
  - Heart rate increased [Recovered/Resolved]
